FAERS Safety Report 10401499 (Version 3)
Quarter: 2014Q3

REPORT INFORMATION
  Report Type: Spontaneous
  Country: US (occurrence: CA)
  Receive Date: 20140822
  Receipt Date: 20140917
  Transmission Date: 20150326
  Serious: Yes (Other)
  Sender: FDA-Public Use
  Company Number: 2014SP004921

PATIENT
  Age: 65 Year
  Sex: Female
  Weight: 80 kg

DRUGS (23)
  1. ARTHROTEC [Concomitant]
     Active Substance: DICLOFENAC SODIUM\MISOPROSTOL
  2. BENTYL [Concomitant]
     Active Substance: DICYCLOMINE HYDROCHLORIDE
  3. TRAMCET [Concomitant]
     Active Substance: ACETAMINOPHEN\TRAMADOL
  4. VENLAFAXINE [Concomitant]
     Active Substance: VENLAFAXINE HYDROCHLORIDE
  5. BRICANYL [Concomitant]
     Active Substance: TERBUTALINE SULFATE
  6. FOLIC ACID. [Concomitant]
     Active Substance: FOLIC ACID
  7. RISEDRONATE SODIUM. [Concomitant]
     Active Substance: RISEDRONATE SODIUM
  8. TRIFLUOPERAZINE [Concomitant]
     Active Substance: TRIFLUOPERAZINE\TRIFLUOPERAZINE HYDROCHLORIDE
  9. BUTALBITAL [Concomitant]
     Active Substance: BUTALBITAL
  10. DIOVAN [Concomitant]
     Active Substance: VALSARTAN
  11. XANAX [Concomitant]
     Active Substance: ALPRAZOLAM
  12. ADALAT CC [Concomitant]
     Active Substance: NIFEDIPINE
  13. CYCLOBENZAPRINE [Concomitant]
     Active Substance: CYCLOBENZAPRINE
  14. OMEPRAZOLE. [Concomitant]
     Active Substance: OMEPRAZOLE
  15. ACETYLSALICYLIC ACID [Concomitant]
     Active Substance: ASPIRIN
  16. PREDNISOLONE. [Concomitant]
     Active Substance: PREDNISOLONE
  17. TENORMIN [Concomitant]
     Active Substance: ATENOLOL
  18. CAFFEINE. [Concomitant]
     Active Substance: CAFFEINE
  19. PHENACETIN [Concomitant]
     Active Substance: PHENACETIN
  20. METHOTREXATE [Suspect]
     Active Substance: METHOTREXATE
     Indication: PRODUCT USED FOR UNKNOWN INDICATION
  21. ENBREL [Suspect]
     Active Substance: ETANERCEPT
     Indication: PRODUCT USED FOR UNKNOWN INDICATION
     Route: 058
  22. CIPROFLOXACIN. [Concomitant]
     Active Substance: CIPROFLOXACIN
  23. NASONEX [Concomitant]
     Active Substance: MOMETASONE FUROATE

REACTIONS (8)
  - Fatigue [Not Recovered/Not Resolved]
  - Somnolence [Not Recovered/Not Resolved]
  - Tremor [Not Recovered/Not Resolved]
  - Headache [Not Recovered/Not Resolved]
  - Activities of daily living impaired [Not Recovered/Not Resolved]
  - Pain [Not Recovered/Not Resolved]
  - Cataract [Not Recovered/Not Resolved]
  - Rash [Not Recovered/Not Resolved]
